FAERS Safety Report 15688580 (Version 4)
Quarter: 2023Q2

REPORT INFORMATION
  Report Type: Other
  Country: AU (occurrence: None)
  Receive Date: 20181205
  Receipt Date: 20230531
  Transmission Date: 20230721
  Serious: Yes (Hospitalization)
  Sender: FDA-Public Use
  Company Number: AU-ROCHE-2225571

PATIENT
  Age: 70 Year
  Sex: Female

DRUGS (1)
  1. OCREVUS [Suspect]
     Active Substance: OCRELIZUMAB
     Indication: Product used for unknown indication
     Dosage: ONGOING?FOR FIRST TWO INFUSIONS FOLLOWING WHICH IT WAS 600 MG EVERY 6 MONTHS
     Route: 041
     Dates: start: 20181127

REACTIONS (6)
  - Oropharyngeal pain [Recovered/Resolved]
  - Nasopharyngitis [Recovering/Resolving]
  - Flushing [Recovered/Resolved]
  - Cerebral haemorrhage [Recovering/Resolving]
  - Fall [Unknown]
  - Head injury [Recovering/Resolving]

NARRATIVE: CASE EVENT DATE: 20181127
